FAERS Safety Report 6728630-2 (Version None)
Quarter: 2010Q2

REPORT INFORMATION
  Report Type: 
  Country: None (occurrence: None)
  Receive Date: 20100517
  Receipt Date: 20100505
  Transmission Date: 20101027
  Serious: Yes (Hospitalization, Other)
  Sender: FDA-Public Use
  Company Number: AT-ELI_LILLY_AND_COMPANY-AT201005001346

PATIENT
  Age: 43 Year
  Sex: Female

DRUGS (8)
  1. ZYPREXA [Suspect]
     Indication: ACUTE PSYCHOSIS
     Dosage: MG, DAILY (1/D)
     Dates: start: 20030401, end: 20040101
  2. ZYPREXA [Suspect]
     Dosage: UNK, UNKNOWN
  3. ZYPREXA [Suspect]
     Dosage: 10 MG, DAILY (1/D)
     Dates: end: 20080401
  4. ZYPREXA [Suspect]
     Dosage: 20 MG, DAILY (1/D)
     Dates: start: 20091016, end: 20091020
  5. ZYPREXA [Suspect]
     Dosage: 10 MG, DAILY (1/D)
     Dates: start: 20091021, end: 20091026
  6. ZYPREXA [Suspect]
     Dosage: 5 MG, EACH EVENING
     Dates: start: 20091027, end: 20091027
  7. ZYPREXA [Suspect]
     Dosage: 10 MG, DAILY (1/D)
     Dates: start: 20091028
  8. ABILIFY [Concomitant]
     Dosage: 10 MG, DAILY (1/D)
     Dates: start: 20091020

REACTIONS (4)
  - ACUTE PSYCHOSIS [None]
  - SEDATION [None]
  - SLEEP DISORDER [None]
  - WEIGHT INCREASED [None]
